FAERS Safety Report 5947890-9 (Version None)
Quarter: 2008Q4

REPORT INFORMATION
  Report Type: 
  Country: None (occurrence: None)
  Receive Date: 20081111
  Receipt Date: 20080827
  Transmission Date: 20090506
  Serious: Yes (Other)
  Sender: FDA-Public Use
  Company Number: A0739571A

PATIENT
  Age: 46 Year
  Sex: Female

DRUGS (5)
  1. TREXIMET [Suspect]
     Indication: MIGRAINE
     Route: 048
     Dates: start: 20080715
  2. LORAZEPAM [Concomitant]
  3. WELLBUTRIN [Concomitant]
  4. FISH OIL [Concomitant]
  5. TOPAMAX [Concomitant]

REACTIONS (4)
  - DEPRESSED MOOD [None]
  - HALLUCINATION [None]
  - INSOMNIA [None]
  - PRODUCT QUALITY ISSUE [None]
